FAERS Safety Report 7546108-3 (Version None)
Quarter: 2011Q2

REPORT INFORMATION
  Report Type: 
  Country: None (occurrence: None)
  Receive Date: 20110614
  Receipt Date: 20110609
  Transmission Date: 20111010
  Serious: Yes (Death, Life-Threatening, Other)
  Sender: FDA-Public Use
  Company Number: PHHY2011JP21566

PATIENT
  Age: 85 Year
  Sex: Male

DRUGS (14)
  1. METHYLPREDNISOLONE SODIUM SUCCINATE [Concomitant]
     Route: 041
  2. METHYLPREDNISOLONE SODIUM SUCCINATE [Concomitant]
     Dosage: UNK
     Route: 041
  3. LASIX [Concomitant]
     Dosage: UNK
     Route: 042
     Dates: start: 20110225, end: 20110316
  4. MEROPENEM [Concomitant]
     Dosage: UNK
     Route: 041
     Dates: start: 20110208, end: 20110305
  5. METHYLPREDNISOLONE SODIUM SUCCINATE [Concomitant]
     Dosage: UNK
     Route: 041
     Dates: start: 20110219
  6. METHYLPREDNISOLONE SODIUM SUCCINATE [Concomitant]
     Route: 041
  7. MAXIPIME [Concomitant]
     Dosage: UNK
     Route: 041
     Dates: start: 20110314
  8. ZOMETA [Suspect]
     Indication: METASTASES TO BONE
  9. ZYVOX [Concomitant]
     Dosage: UNK
     Route: 041
     Dates: start: 20110314, end: 20110316
  10. PAZUCROSS [Concomitant]
     Dosage: UNK
     Route: 041
     Dates: start: 20110310, end: 20110313
  11. METHYLPREDNISOLONE SODIUM SUCCINATE [Concomitant]
     Route: 041
  12. FUNGUARD [Concomitant]
     Dosage: UNK
     Route: 041
     Dates: start: 20110225, end: 20110314
  13. ZOMETA [Suspect]
     Indication: HYPERCALCAEMIA OF MALIGNANCY
     Dosage: 4 MG, PER ADMINISTRATION
     Route: 041
     Dates: start: 20110212
  14. VANCOMYCIN HCL [Concomitant]
     Dosage: UNK
     Route: 041
     Dates: start: 20110208, end: 20110305

REACTIONS (13)
  - PLATELET COUNT DECREASED [None]
  - PNEUMOTHORAX [None]
  - C-REACTIVE PROTEIN INCREASED [None]
  - PYREXIA [None]
  - ALANINE AMINOTRANSFERASE INCREASED [None]
  - ASPERGILLUS TEST POSITIVE [None]
  - BLOOD LACTATE DEHYDROGENASE INCREASED [None]
  - ASPARTATE AMINOTRANSFERASE INCREASED [None]
  - STAPHYLOCOCCAL BACTERAEMIA [None]
  - GENERAL PHYSICAL HEALTH DETERIORATION [None]
  - INTERSTITIAL LUNG DISEASE [None]
  - DYSPNOEA [None]
  - CELL MARKER INCREASED [None]
